FAERS Safety Report 8399551 (Version 2)
Quarter: 2013Q2

REPORT INFORMATION
  Report Type: Spontaneous
  Country: US (occurrence: None)
  Receive Date: 20120131
  Receipt Date: 20120911
  Transmission Date: 20140414
  Serious: Yes (Other)
  Sender: FDA-Public Use
  Company Number: 2012-00065

PATIENT
  Age: 65 Year
  Sex: Female
  Weight: 49.9 kg

DRUGS (3)
  1. MELOXICAM [Suspect]
     Indication: ARTHRITIS
     Dosage: 15 MG (7.5 MG, 2 IN 1 D)
     Route: 048
     Dates: start: 200812, end: 201112
  2. CONJUGATED ESTROGENS (PREMARIN) [Concomitant]
  3. VITAMIN D [Concomitant]

REACTIONS (3)
  - BONE PAIN [None]
  - MUSCLE SPASMS [None]
  - BONE LOSS [None]
